FAERS Safety Report 4653425-3 (Version None)
Quarter: 2005Q2

REPORT INFORMATION
  Report Type: 
  Country: None (occurrence: None)
  Receive Date: 20050505
  Receipt Date: 20050430
  Transmission Date: 20051028
  Serious: Yes (Other)
  Sender: FDA-Public Use
  Company Number: GB-GLAXOSMITHKLINE-B0379723A

PATIENT
  Age: 53 Year
  Sex: Male

DRUGS (4)
  1. NIQUITIN CQ 21MG [Suspect]
     Dosage: 21MG PER DAY
     Route: 062
     Dates: start: 20050203, end: 20050316
  2. NICOTINELL PATCH [Suspect]
     Route: 062
     Dates: start: 20050304, end: 20050318
  3. CO-AMOXICLAV [Concomitant]
     Indication: TOOTH ABSCESS
     Route: 048
     Dates: start: 20050113, end: 20050120
  4. NICOTINELL GUM [Concomitant]
     Route: 002
     Dates: start: 20050318

REACTIONS (1)
  - URTICARIA [None]
